FAERS Safety Report 14944530 (Version 1)
Quarter: 2018Q2

REPORT INFORMATION
  Report Type: Spontaneous
  Country: FR (occurrence: FR)
  Receive Date: 20180529
  Receipt Date: 20180529
  Transmission Date: 20180711
  Serious: Yes (Congenital Anomaly)
  Sender: FDA-Public Use
  Company Number: FR-TEVA-2018-FR-898695

PATIENT
  Age: 0 Day
  Sex: Male
  Weight: 3.63 kg

DRUGS (1)
  1. CHLORHYDRATE DE SOTALOL [Suspect]
     Active Substance: SOTALOL HYDROCHLORIDE
     Indication: VENTRICULAR ARRHYTHMIA
     Dosage: 80 MILLIGRAM DAILY;
     Route: 064
     Dates: start: 20170423, end: 201711

REACTIONS (2)
  - Ear malformation [Recovered/Resolved with Sequelae]
  - Maternal drugs affecting foetus [None]

NARRATIVE: CASE EVENT DATE: 20180118
